FAERS Safety Report 10174120 (Version 1)
Quarter: 2014Q2

REPORT INFORMATION
  Report Type: Spontaneous
  Country: CH (occurrence: CH)
  Receive Date: 20140515
  Receipt Date: 20140515
  Transmission Date: 20141212
  Serious: Yes (Hospitalization)
  Sender: FDA-Public Use
  Company Number: CH-ASTRAZENECA-2014SE31326

PATIENT
  Age: 55 Year
  Sex: Male
  Weight: 94.5 kg

DRUGS (12)
  1. SEROQUEL [Suspect]
     Route: 048
     Dates: start: 20140221
  2. SEROQUEL [Suspect]
     Route: 048
     Dates: start: 20140221
  3. LYRICA [Suspect]
     Route: 065
     Dates: start: 20140221
  4. DALMADORM BRUCH [Suspect]
     Route: 048
     Dates: start: 20140221
  5. SAROTEN RETARD [Suspect]
     Route: 048
     Dates: start: 20140221
  6. DAFALGAN [Concomitant]
     Route: 048
  7. DAFALGAN [Concomitant]
     Dosage: DOSE INCREASED TO 3G/DAY
     Route: 048
  8. NEXIUM [Concomitant]
     Route: 048
  9. DEPAKINE CHRONO [Concomitant]
     Dosage: 87/200 MG, TWO TIMES A DAY
     Route: 048
  10. DIPIPERON [Concomitant]
     Dosage: DAILY
     Route: 048
     Dates: start: 20140221
  11. ZALDIAR [Concomitant]
     Dosage: 1 DF, 325/37.5 MG, DAILY
     Route: 048
     Dates: start: 20140221
  12. SIRDALUD [Concomitant]
     Route: 048

REACTIONS (3)
  - Drug abuse [Recovered/Resolved]
  - Confusional state [Recovered/Resolved]
  - Somnolence [Recovered/Resolved]
